FAERS Safety Report 6794530-5 (Version None)
Quarter: 2010Q2

REPORT INFORMATION
  Report Type: 
  Country: None (occurrence: None)
  Receive Date: 20100625
  Receipt Date: 20100118
  Transmission Date: 20101027
  Serious: No
  Sender: FDA-Public Use
  Company Number: A0839963A

PATIENT
  Age: 59 Year
  Sex: Female

DRUGS (2)
  1. ALBUTEROL [Suspect]
     Indication: BRONCHITIS
     Dosage: 1PUFF FOUR TIMES PER DAY
     Route: 055
     Dates: start: 20100101, end: 20100111
  2. VENTOLIN [Suspect]
     Indication: BRONCHITIS
     Dosage: 2PUFF SIX TIMES PER DAY
     Route: 055
     Dates: start: 20100112, end: 20100116

REACTIONS (3)
  - DYSPHONIA [None]
  - LARYNGITIS [None]
  - OROPHARYNGEAL PAIN [None]
